FAERS Safety Report 10242095 (Version 2)
Quarter: 2014Q3

REPORT INFORMATION
  Report Type: Spontaneous
  Country: FR (occurrence: FR)
  Receive Date: 20140617
  Receipt Date: 20140731
  Transmission Date: 20150326
  Serious: Yes (Hospitalization, Disabling, Other)
  Sender: FDA-Public Use
  Company Number: FR-BRISTOL-MYERS SQUIBB COMPANY-20983631

PATIENT
  Age: 2 Month
  Sex: Female
  Weight: 2.39 kg

DRUGS (6)
  1. VALDOXAN [Suspect]
     Active Substance: AGOMELATINE
     Route: 064
     Dates: end: 20131115
  2. DEPAKOTE [Suspect]
     Active Substance: DIVALPROEX SODIUM
     Route: 064
     Dates: end: 20131115
  3. PROZAC [Suspect]
     Active Substance: FLUOXETINE HYDROCHLORIDE
     Dosage: DAILY DOSE: 40MG
     Route: 064
     Dates: end: 20131115
  4. THERALENE [Suspect]
     Active Substance: TRIMEPRAZINE
     Route: 064
     Dates: end: 20131115
  5. ABILIFY [Suspect]
     Active Substance: ARIPIPRAZOLE
     Route: 064
     Dates: end: 20131115
  6. VALIUM [Suspect]
     Active Substance: DIAZEPAM
     Route: 064
     Dates: end: 20131115

REACTIONS (2)
  - Foetal exposure during pregnancy [Unknown]
  - Meningomyelocele [Recovering/Resolving]

NARRATIVE: CASE EVENT DATE: 20140304
